FAERS Safety Report 8567706-4 (Version None)
Quarter: 2012Q3

REPORT INFORMATION
  Report Type: 
  Country: None (occurrence: None)
  Receive Date: 20120803
  Receipt Date: 20120727
  Transmission Date: 20120928
  Serious: Yes (Hospitalization, Congenital Anomaly)
  Sender: FDA-Public Use
  Company Number: US-GLAXOSMITHKLINE-A0977191A

PATIENT
  Sex: Male

DRUGS (4)
  1. MULTI-VITAMINS [Concomitant]
  2. PAXIL [Suspect]
     Indication: DEPRESSION
     Dosage: 20MG PER DAY
     Route: 064
  3. INSULIN [Concomitant]
  4. ATENOLOL [Concomitant]

REACTIONS (3)
  - CYTOGENETIC ABNORMALITY [None]
  - TALIPES [None]
  - FOETAL EXPOSURE DURING PREGNANCY [None]
